FAERS Safety Report 4507728-3 (Version None)
Quarter: 2004Q4

REPORT INFORMATION
  Report Type: 
  Country: None (occurrence: None)
  Receive Date: 20041015
  Receipt Date: 20040209
  Transmission Date: 20050328
  Serious: Yes (Other)
  Sender: FDA-Public Use
  Company Number: 2004008686

PATIENT
  Sex: Female
  Weight: 55.3388 kg

DRUGS (3)
  1. NEURONTIN [Suspect]
     Indication: TRIGEMINAL NEURALGIA
     Dosage: ORAL
     Route: 048
     Dates: end: 20031101
  2. ANTIDEPRESSANTS (ANTIDEPRESSANTS) [Suspect]
     Indication: AFFECTIVE DISORDER
  3. ALL OTHER THERAPEUTIC PRODUCTS (ALL OTHER THERAPEUTIC PRODUCTS) [Suspect]
     Indication: AFFECTIVE DISORDER

REACTIONS (25)
  - ANXIETY [None]
  - BLOOD URINE [None]
  - CALCULUS URINARY [None]
  - DELIRIUM [None]
  - DIFFICULTY IN WALKING [None]
  - FEELING ABNORMAL [None]
  - GASTROENTERITIS VIRAL [None]
  - HAEMATOCHEZIA [None]
  - HUNGER [None]
  - HYPERPHAGIA [None]
  - INSOMNIA [None]
  - INTENTIONAL OVERDOSE [None]
  - IRRITABILITY [None]
  - MUSCLE CRAMP [None]
  - MYALGIA [None]
  - NERVOUSNESS [None]
  - NEURALGIA [None]
  - PAIN [None]
  - PARAESTHESIA [None]
  - SENSATION OF PRESSURE [None]
  - SINUSITIS [None]
  - SOMNOLENCE [None]
  - URINARY TRACT INFECTION [None]
  - WEIGHT DECREASED [None]
  - WEIGHT INCREASED [None]
